FAERS Safety Report 21882776 (Version 1)
Quarter: 2023Q1

REPORT INFORMATION
  Report Type: Spontaneous
  Country: FR (occurrence: FR)
  Receive Date: 20230119
  Receipt Date: 20230119
  Transmission Date: 20230418
  Serious: Yes (Hospitalization)
  Sender: FDA-Public Use
  Company Number: FR-AFSSAPS-PC20222783

PATIENT
  Age: 87 Year
  Sex: Female
  Weight: 63 kg

DRUGS (3)
  1. ALLOPURINOL [Suspect]
     Active Substance: ALLOPURINOL
     Indication: Gout
     Dosage: 1 DOSAGE FORM
     Route: 048
     Dates: start: 202203, end: 202203
  2. COLCHICINE [Suspect]
     Active Substance: COLCHICINE
     Indication: Gouty arthritis
     Dosage: 3 DOSAGE FORM, DAILY
     Route: 048
     Dates: start: 202203, end: 202203
  3. COLCHICINE [Suspect]
     Active Substance: COLCHICINE
     Route: 048
     Dates: start: 202203

REACTIONS (1)
  - Fixed eruption [Recovered/Resolved]

NARRATIVE: CASE EVENT DATE: 20220301
